FAERS Safety Report 8338084-0 (Version None)
Quarter: 2012Q2

REPORT INFORMATION
  Report Type: 
  Country: None (occurrence: None)
  Receive Date: 20120504
  Receipt Date: 20120503
  Transmission Date: 20120825
  Serious: Yes (Death)
  Sender: FDA-Public Use
  Company Number: IT-JNJFOC-20120313134

PATIENT

DRUGS (8)
  1. VINCRISTINE SULFATE [Suspect]
     Indication: HODGKIN'S DISEASE
     Route: 065
  2. ETOPOSIDE [Suspect]
     Indication: HODGKIN'S DISEASE
     Route: 065
  3. DOXORUBICIN HCL [Suspect]
     Indication: HODGKIN'S DISEASE
     Route: 042
  4. PREDNISONE TAB [Suspect]
     Indication: HODGKIN'S DISEASE
     Route: 065
  5. VINBLASTINE SULFATE [Suspect]
     Indication: HODGKIN'S DISEASE
     Route: 065
  6. MECHLORETHAMINE [Suspect]
     Indication: HODGKIN'S DISEASE
     Route: 065
  7. DOXORUBICIN HCL [Suspect]
     Route: 065
  8. BLEOMYCIN SULFATE [Suspect]
     Indication: HODGKIN'S DISEASE
     Route: 065

REACTIONS (1)
  - DEATH [None]
